FAERS Safety Report 18201092 (Version 3)
Quarter: 2020Q3

REPORT INFORMATION
  Report Type: Report from Study
  Country: None (occurrence: US)
  Receive Date: 20200826
  Receipt Date: 20200910
  Transmission Date: 20201103
  Serious: Yes (Hospitalization)
  Sender: FDA-Public Use
  Company Number: US-ABBVIE-20K-163-3450398-00

PATIENT
  Age: 68 Year
  Sex: Female
  Weight: 74.46 kg

DRUGS (1)
  1. HUMIRA [Suspect]
     Active Substance: ADALIMUMAB
     Indication: ANKYLOSING SPONDYLITIS
     Route: 058
     Dates: start: 201910, end: 202005

REACTIONS (7)
  - Inflammation [Not Recovered/Not Resolved]
  - Neck injury [Unknown]
  - Intervertebral disc protrusion [Recovering/Resolving]
  - Hypoaesthesia [Not Recovered/Not Resolved]
  - Pain [Not Recovered/Not Resolved]
  - Fatigue [Recovered/Resolved]
  - Ankylosing spondylitis [Not Recovered/Not Resolved]

NARRATIVE: CASE EVENT DATE: 201910
